FAERS Safety Report 7623263-8 (Version None)
Quarter: 2011Q3

REPORT INFORMATION
  Report Type: 
  Country: None (occurrence: None)
  Receive Date: 20110720
  Receipt Date: 20110713
  Transmission Date: 20111222
  Serious: Yes (Hospitalization, Other)
  Sender: FDA-Public Use
  Company Number: JP-ROCHE-610049

PATIENT
  Sex: Male

DRUGS (50)
  1. TOCILIZUMAB [Suspect]
     Route: 041
     Dates: start: 20080826, end: 20080826
  2. PREDNISOLONE [Suspect]
     Indication: JUVENILE ARTHRITIS
     Dosage: FORM: ORAL FORMULATION (NOT OTHERWISE SPECIFIED).
     Route: 048
     Dates: end: 20080723
  3. PREDNISOLONE [Suspect]
     Dosage: FORM: ORAL FORMULATION (NOT OTHERWISE SPECIFIED).
     Route: 048
     Dates: start: 20080724, end: 20080730
  4. PREDNISOLONE [Suspect]
     Dosage: FORM: ORAL FORMULATION (NOT OTHERWISE SPECIFIED).
     Route: 048
     Dates: start: 20090206
  5. FAMOTIDINE [Concomitant]
     Route: 048
     Dates: start: 20080702, end: 20081002
  6. TOCILIZUMAB [Suspect]
     Indication: JUVENILE ARTHRITIS
     Route: 041
     Dates: start: 20080715, end: 20080812
  7. TOCILIZUMAB [Suspect]
     Route: 041
     Dates: start: 20090123, end: 20090123
  8. TOCILIZUMAB [Suspect]
     Route: 041
     Dates: start: 20090206, end: 20090206
  9. PREDNISOLONE [Suspect]
     Dosage: FORM: ORAL FORMULATION (NOT OTHERWISE SPECIFIED).
     Route: 048
     Dates: start: 20080814, end: 20080826
  10. ALFAROL [Concomitant]
     Dosage: DRUG NAME REPORTED AS ALFAROL CAPSULES
     Route: 048
     Dates: start: 20080710, end: 20080715
  11. LISINOPRIL [Concomitant]
     Route: 048
     Dates: start: 20090707, end: 20090708
  12. TOCILIZUMAB [Suspect]
     Route: 041
     Dates: start: 20081127, end: 20081127
  13. TOCILIZUMAB [Suspect]
     Route: 041
     Dates: start: 20090605, end: 20090605
  14. PREDNISOLONE [Suspect]
     Dosage: FORM: ORAL FORMULATION (NOT OTHERWISE SPECIFIED).
     Route: 048
     Dates: start: 20081003, end: 20081114
  15. XALATAN [Concomitant]
     Dosage: FORM: DROPS (INTRAOCULAR); NOTE: DOSAGE ADJUSTED.
     Route: 047
     Dates: end: 20081001
  16. IBRUPROFEN [Concomitant]
     Route: 048
     Dates: start: 20080705, end: 20080709
  17. LISINOPRIL [Concomitant]
     Route: 048
     Dates: start: 20090306, end: 20090522
  18. AMLODIPINE [Concomitant]
     Route: 048
     Dates: start: 20080728, end: 20080909
  19. TOCILIZUMAB [Suspect]
     Route: 041
     Dates: start: 20080909, end: 20080909
  20. TOCILIZUMAB [Suspect]
     Route: 041
     Dates: start: 20081031, end: 20081031
  21. TOCILIZUMAB [Suspect]
     Route: 041
     Dates: start: 20081211, end: 20081225
  22. TIMOLOL MALEATE [Concomitant]
     Dosage: DRUG: RYSMON TG; FORM: DROPS (INTRAOCULAR); NOTE : DOSAGE ADJUSTED.
     Route: 047
     Dates: end: 20080803
  23. MUCOSTA [Concomitant]
     Route: 048
     Dates: start: 20081017
  24. AZUNOL [Concomitant]
     Dosage: NOTE: DOSAGE ADJUSTED.
     Route: 061
     Dates: start: 20080703, end: 20081016
  25. LISINOPRIL [Concomitant]
     Route: 048
     Dates: start: 20090620, end: 20090706
  26. TOCILIZUMAB [Suspect]
     Route: 041
     Dates: start: 20081114, end: 20081114
  27. PREDNISOLONE [Suspect]
     Route: 048
     Dates: start: 20080807, end: 20080813
  28. MUCOSTA [Concomitant]
     Dosage: FORM: ORAL FORMULATION (NOT OTHERWISE SPECIFIED).
     Route: 048
     Dates: start: 20080702, end: 20081016
  29. LAXOBERON [Concomitant]
     Dosage: NOTE: DOSAGE ADJUSTED.
     Route: 048
     Dates: start: 20080704, end: 20081016
  30. FELBINAC [Concomitant]
     Dosage: DRUG: SELTOUCH; NOTE: DOSAGE ADJUSTED. FORM: TAPE
     Route: 061
     Dates: start: 20080707, end: 20090604
  31. TOCILIZUMAB [Suspect]
     Route: 041
     Dates: start: 20080919, end: 20081016
  32. PREDNISOLONE [Suspect]
     Dosage: FORM: ORAL FORMULATION (NOT OTHERWISE SPECIFIED).
     Route: 048
     Dates: start: 20080910, end: 20080919
  33. GENTACIN [Concomitant]
     Dosage: NOTE: DOSAGE ADJUSTED.
     Route: 061
     Dates: start: 20080702, end: 20081016
  34. IBRUPROFEN [Concomitant]
     Route: 048
     Dates: start: 20081003, end: 20081016
  35. HIRUDOID [Concomitant]
     Dosage: FORM: DOSAGE ADJUSTED.
     Route: 061
     Dates: start: 20080714
  36. GLAKAY [Concomitant]
     Route: 048
     Dates: start: 20080715
  37. KETOPROFEN [Concomitant]
     Dosage: DRUG NAME REPORTED AS MOHRUS TAPE, FORM:TAPE, DOSAGE ADJUSTED.
     Route: 061
     Dates: start: 20090605
  38. TOCILIZUMAB [Suspect]
     Route: 041
     Dates: start: 20090706
  39. PREDNISOLONE [Suspect]
     Dosage: FORM: ORAL FORMULATION (NOT OTHERWISE SPECIFIED).
     Route: 048
     Dates: start: 20080920, end: 20081002
  40. PREDNISOLONE [Suspect]
     Dosage: FORM: ORAL FORMULATION (NOT OTHERWISE SPECIFIED).
     Route: 048
     Dates: start: 20081115, end: 20090205
  41. IBRUPROFEN [Concomitant]
     Route: 048
     Dates: start: 20080710, end: 20081002
  42. LISINOPRIL [Concomitant]
     Route: 048
     Dates: start: 20080714, end: 20090305
  43. TIMOPTOL XE [Concomitant]
     Dosage: FORM; DROPS (INTRAOCULAR); NOTE: DOSAGE ADJUSTED.
     Route: 047
     Dates: start: 20081002
  44. TOCILIZUMAB [Suspect]
     Route: 041
     Dates: start: 20090220, end: 20090220
  45. TOCILIZUMAB [Suspect]
     Route: 041
     Dates: start: 20090306, end: 20090522
  46. TOCILIZUMAB [Suspect]
     Route: 041
     Dates: start: 20090619, end: 20090619
  47. PREDNISOLONE [Suspect]
     Dosage: FORM: ORAL FORMULATION (NOT OTHERWISE SPECIFIED).
     Route: 048
     Dates: start: 20080731, end: 20080806
  48. PREDNISOLONE [Suspect]
     Dosage: FORM: ORAL FORMULATION (NOT OTHERWISE SPECIFIED).
     Route: 048
     Dates: start: 20080827, end: 20080909
  49. FLOMAX [Concomitant]
     Route: 048
     Dates: start: 20080806, end: 20080811
  50. TRAVOPROST [Concomitant]
     Dosage: DRUG: TRAVATANZ; FORM: DROPS (INTRAOCULAR), NOTE: DOSAGE ADJUSTED.
     Route: 047
     Dates: start: 20081002

REACTIONS (8)
  - POLYARTERITIS NODOSA [None]
  - SUBARACHNOID HAEMORRHAGE [None]
  - BLEPHARITIS [None]
  - HERPES ZOSTER [None]
  - RENAL INFARCT [None]
  - PARONYCHIA [None]
  - UPPER RESPIRATORY TRACT INFLAMMATION [None]
  - CEREBRAL INFARCTION [None]
